FAERS Safety Report 10170118 (Version 1)
Quarter: 2014Q2

REPORT INFORMATION
  Report Type: Spontaneous
  Country: HR (occurrence: HR)
  Receive Date: 20140513
  Receipt Date: 20140513
  Transmission Date: 20141212
  Serious: Yes (Other)
  Sender: FDA-Public Use
  Company Number: HR-TEVA-479082ISR

PATIENT
  Age: 51 Year
  Sex: Female
  Weight: 87 kg

DRUGS (4)
  1. LOQUEN [Suspect]
     Indication: DEPRESSION
     Route: 048
     Dates: start: 20130117
  2. VELAFAX XL [Concomitant]
     Indication: DEPRESSION
     Route: 048
     Dates: start: 20130222
  3. LAMAL [Concomitant]
     Indication: DEPRESSION
     Route: 048
     Dates: start: 20130222
  4. ZIPANTOLA [Concomitant]
     Indication: GASTRITIS
     Route: 048
     Dates: start: 201206

REACTIONS (3)
  - Hallucination [Unknown]
  - Sleep disorder [Unknown]
  - Nightmare [Unknown]
